FAERS Safety Report 9680744 (Version 4)
Quarter: 2014Q1

REPORT INFORMATION
  Report Type: Report from Study
  Country: IN (occurrence: IN)
  Receive Date: 20131111
  Receipt Date: 20140220
  Transmission Date: 20141002
  Serious: Yes (Other)
  Sender: FDA-Public Use
  Company Number: PHHY2013IN127228

PATIENT
  Age: 38 Year
  Sex: Male
  Weight: 51.7 kg

DRUGS (8)
  1. MYCOPHENOLIC ACID [Suspect]
     Indication: RENAL TRANSPLANT
     Dosage: 360 MG, TID
     Dates: start: 20110802
  2. MYCOPHENOLIC ACID [Suspect]
     Dosage: 360 MG, TID
     Dates: start: 20110817
  3. TACROLIMUS [Suspect]
     Indication: RENAL TRANSPLANT
     Dosage: 0.1 MG/KG, UNK
     Dates: start: 20110802
  4. TACROLIMUS [Suspect]
     Dosage: 0.09 MG/KG, UNK
     Dates: start: 20110817
  5. TACROLIMUS [Suspect]
     Dosage: 0.04 MG/KG, UNK
     Dates: start: 20120803
  6. VALGAN [Concomitant]
     Dosage: UNK
  7. THYMOGLOBULIN [Concomitant]
  8. INSULIN [Concomitant]
     Dosage: UNK UKN, UNK

REACTIONS (3)
  - Renal failure chronic [Unknown]
  - Erosive duodenitis [Recovered/Resolved]
  - Hypertension [Not Recovered/Not Resolved]
